FAERS Safety Report 21426012 (Version 1)
Quarter: 2022Q4

REPORT INFORMATION
  Report Type: Spontaneous
  Country: NL (occurrence: NL)
  Receive Date: 20221008
  Receipt Date: 20221008
  Transmission Date: 20230113
  Serious: Yes (Other)
  Sender: FDA-Public Use
  Company Number: None

PATIENT
  Sex: Male

DRUGS (1)
  1. OXAZEPAM [Suspect]
     Active Substance: OXAZEPAM
     Indication: Anxiety
     Dosage: 1 X PER DAY 1 PIECE IF NECESSARY , BRAND NAME NOT SPECIFIED ,  THERAPY END DATE : ASKU , FORM STRENG
     Dates: start: 20190922

REACTIONS (1)
  - Atrioventricular block [Recovered/Resolved]
